FAERS Safety Report 5635436-4 (Version None)
Quarter: 2008Q1

REPORT INFORMATION
  Report Type: 
  Country: None (occurrence: None)
  Receive Date: 20080222
  Receipt Date: 20080212
  Transmission Date: 20080703
  Serious: Yes (Death, Hospitalization)
  Sender: FDA-Public Use
  Company Number: NO-PFIZER INC-2008013556

PATIENT
  Sex: Female

DRUGS (3)
  1. ARTHROTEC [Suspect]
     Route: 048
  2. FOSAMAX [Suspect]
     Route: 048
  3. WARFARIN SODIUM [Suspect]
     Route: 048

REACTIONS (2)
  - DEATH [None]
  - MELAENA [None]
